FAERS Safety Report 8444725-X (Version None)
Quarter: 2012Q2

REPORT INFORMATION
  Report Type: 
  Country: None (occurrence: None)
  Receive Date: 20120611
  Receipt Date: 20120526
  Transmission Date: 20120825
  Serious: Yes (Hospitalization)
  Sender: FDA-Public Use
  Company Number: 2012AP001614

PATIENT
  Age: 8 Year
  Sex: Male

DRUGS (3)
  1. CITALOPRAM HYDROBROMIDE [Suspect]
     Indication: POST-TRAUMATIC STRESS DISORDER
  2. CITALOPRAM HYDROBROMIDE [Suspect]
     Indication: OFF LABEL USE
  3. CITALOPRAM HYDROBROMIDE [Suspect]
     Indication: ATTENTION DEFICIT/HYPERACTIVITY DISORDER

REACTIONS (17)
  - URINARY INCONTINENCE [None]
  - MYDRIASIS [None]
  - ELECTROCARDIOGRAM QT PROLONGED [None]
  - ENCEPHALOPATHY [None]
  - SOMNOLENCE [None]
  - FLUSHING [None]
  - INCOHERENT [None]
  - NASOPHARYNGITIS [None]
  - OFF LABEL USE [None]
  - AGITATION [None]
  - CLONUS [None]
  - SEROTONIN SYNDROME [None]
  - TORTICOLLIS [None]
  - TACHYCARDIA [None]
  - SALIVARY HYPERSECRETION [None]
  - TREMOR [None]
  - HYPERTENSION [None]
